FAERS Safety Report 5210468-9 (Version None)
Quarter: 2007Q1

REPORT INFORMATION
  Report Type: 
  Country: None (occurrence: None)
  Receive Date: 20070117
  Receipt Date: 20070108
  Transmission Date: 20070707
  Serious: Yes (Other)
  Sender: FDA-Public Use
  Company Number: PHEH2006US09481

PATIENT
  Age: 54 Year
  Sex: Female
  Weight: 90.249 kg

DRUGS (6)
  1. 5-FU + EPIRUBICIN + CYCLOPHOSPHAMIDE [Concomitant]
     Indication: BREAST CANCER
     Dosage: 5FU+CYT 800 MG/EPIRUB.170 MG Q 21 DAYS
     Dates: start: 20050826, end: 20060123
  2. AVASTIN [Concomitant]
     Indication: BREAST CANCER
     Dosage: 900 MG EVERY 21 DAYS
     Dates: start: 20060213, end: 20060427
  3. CARBOPLATIN [Concomitant]
     Indication: BREAST CANCER
     Dosage: 460 MG EVERY 21 DAYS
     Dates: start: 20060213, end: 20060427
  4. TAXOTERE [Concomitant]
     Indication: BREAST CANCER
     Dosage: 150 MG EVERY 21 DAYS
     Dates: start: 20060213, end: 20060427
  5. ZOMETA [Suspect]
     Indication: METASTASES TO BONE
     Dosage: 4 MG EVERY MONTH
     Dates: start: 20050826, end: 20060427
  6. DECADRON [Concomitant]
     Indication: PROPHYLAXIS
     Dosage: 4 MG, BID FOR 3 DAYS
     Dates: start: 20060213, end: 20060427

REACTIONS (9)
  - BONE DISORDER [None]
  - LOOSE TOOTH [None]
  - ORAL SOFT TISSUE DISORDER [None]
  - OSTEOMYELITIS [None]
  - OSTEONECROSIS [None]
  - PAIN [None]
  - PAIN IN JAW [None]
  - SEQUESTRECTOMY [None]
  - SWELLING [None]
